FAERS Safety Report 17284182 (Version 1)
Quarter: 2020Q1

REPORT INFORMATION
  Report Type: Report from Study
  Country: PH (occurrence: PH)
  Receive Date: 20200117
  Receipt Date: 20200117
  Transmission Date: 20200409
  Serious: Yes (Death, Other)
  Sender: FDA-Public Use
  Company Number: PH-SEATTLE GENETICS-2019SGN02881

PATIENT
  Sex: Male

DRUGS (1)
  1. BRENTUXIMAB VEDOTIN-MPI [Suspect]
     Active Substance: BRENTUXIMAB VEDOTIN
     Indication: HODGKIN^S DISEASE
     Dosage: UNK
     Route: 042
     Dates: start: 20190415

REACTIONS (3)
  - Adverse drug reaction [Unknown]
  - Death [Fatal]
  - Ill-defined disorder [Recovering/Resolving]
